FAERS Safety Report 17880599 (Version 1)
Quarter: 2020Q2

REPORT INFORMATION
  Report Type: Spontaneous
  Country: US (occurrence: US)
  Receive Date: 20200610
  Receipt Date: 20200610
  Transmission Date: 20200714
  Serious: Yes (Hospitalization)
  Sender: FDA-Public Use
  Company Number: None

PATIENT
  Age: 60 Year
  Sex: Male

DRUGS (5)
  1. CELEBREX [Concomitant]
     Active Substance: CELECOXIB
  2. OTREXUP [Concomitant]
     Active Substance: METHOTREXATE
     Dates: start: 20190128, end: 20190528
  3. ENBREL [Suspect]
     Active Substance: ETANERCEPT
     Indication: PSORIASIS
     Route: 058
  4. ENBREL [Suspect]
     Active Substance: ETANERCEPT
     Indication: RHEUMATOID ARTHRITIS
     Route: 058
  5. TRAMADOL/APAP [Concomitant]
     Active Substance: ACETAMINOPHEN\TRAMADOL

REACTIONS (2)
  - Pain [None]
  - Dyspnoea [None]
